FAERS Safety Report 9946456 (Version 1)
Quarter: 2014Q1

REPORT INFORMATION
  Report Type: Spontaneous
  Country: US (occurrence: US)
  Receive Date: 20140303
  Receipt Date: 20140303
  Transmission Date: 20141002
  Serious: Yes (Other)
  Sender: FDA-Public Use
  Company Number: US-AMGEN-USASP2013090543

PATIENT
  Age: 57 Year
  Sex: Female
  Weight: 66.21 kg

DRUGS (3)
  1. ENBREL [Suspect]
     Indication: PSORIASIS
     Dosage: 50 MG, 2 TIMES/WK
     Route: 058
     Dates: start: 201309
  2. TYLENOL                            /00020001/ [Concomitant]
     Dosage: UNK
  3. ADVIL                              /00044201/ [Concomitant]
     Dosage: UNK

REACTIONS (3)
  - Conjunctivitis [Unknown]
  - Upper respiratory tract infection [Recovered/Resolved]
  - Injection site pain [Unknown]
